FAERS Safety Report 8045277-9 (Version None)
Quarter: 2012Q1

REPORT INFORMATION
  Report Type: 
  Country: None (occurrence: None)
  Receive Date: 20120113
  Receipt Date: 20120110
  Transmission Date: 20120608
  Serious: Yes (Other)
  Sender: FDA-Public Use
  Company Number: GB-PFIZER INC-2012006752

PATIENT
  Age: 34 Year
  Weight: 68 kg

DRUGS (9)
  1. ARTHROTEC [Suspect]
     Indication: EAR PAIN
  2. OLANZAPINE [Concomitant]
  3. CANNABIS [Concomitant]
  4. ACETAMINOPHEN AND CODEINE PHOSPHATE [Concomitant]
  5. ARTHROTEC [Suspect]
     Indication: BACK PAIN
     Route: 048
  6. ARTHROTEC [Suspect]
     Indication: OROPHARYNGEAL PAIN
  7. PSEUDOEPHEDRINE [Concomitant]
  8. ARTHROTEC [Suspect]
     Indication: CHEST PAIN
  9. ARTHROTEC [Suspect]
     Indication: DENTAL CARIES

REACTIONS (5)
  - ALTERED STATE OF CONSCIOUSNESS [None]
  - CONVULSION [None]
  - ANXIETY [None]
  - NAUSEA [None]
  - PARALYSIS [None]
